FAERS Safety Report 10968897 (Version 3)
Quarter: 2015Q2

REPORT INFORMATION
  Report Type: Spontaneous
  Country: JP (occurrence: JP)
  Receive Date: 20150331
  Receipt Date: 20150501
  Transmission Date: 20150821
  Serious: Yes (Other)
  Sender: FDA-Public Use
  Company Number: JP-009507513-1503JPN011331

PATIENT
  Age: 77 Year
  Sex: Male

DRUGS (26)
  1. DULOXETINE HYDROCHLORIDE. [Suspect]
     Active Substance: DULOXETINE HYDROCHLORIDE
     Indication: PAIN
     Dosage: 20 MG, QD
     Route: 048
  2. PREGABALIN. [Concomitant]
     Active Substance: PREGABALIN
     Dosage: 150 MG, UNK
     Route: 048
  3. ACETAMINOPHEN (+) TRAMADOL HYDROCHLORIDE [Suspect]
     Active Substance: ACETAMINOPHEN\TRAMADOL HYDROCHLORIDE
     Dosage: 5 DF, UNK
     Route: 048
  4. TOPALGIC (SUPROFEN) [Concomitant]
     Active Substance: SUPROFEN
     Indication: HERPES ZOSTER
     Route: 003
  5. AMITRIPTYLINE HYDROCHLORIDE. [Suspect]
     Active Substance: AMITRIPTYLINE HYDROCHLORIDE
     Dosage: 20 MG, UNK
     Route: 048
  6. ACETAMINOPHEN (+) TRAMADOL HYDROCHLORIDE [Suspect]
     Active Substance: ACETAMINOPHEN\TRAMADOL HYDROCHLORIDE
     Dosage: 6 DF, UNK
     Route: 048
  7. ACETAMINOPHEN (+) TRAMADOL HYDROCHLORIDE [Suspect]
     Active Substance: ACETAMINOPHEN\TRAMADOL HYDROCHLORIDE
     Dosage: 1 DF, UNK
     Route: 048
  8. PREGABALIN. [Concomitant]
     Active Substance: PREGABALIN
     Dosage: 100 MG, UNK
     Route: 048
  9. PREGABALIN. [Concomitant]
     Active Substance: PREGABALIN
     Dosage: 50 MG, UNK
     Route: 048
  10. ACETAMINOPHEN (+) TRAMADOL HYDROCHLORIDE [Suspect]
     Active Substance: ACETAMINOPHEN\TRAMADOL HYDROCHLORIDE
     Dosage: 3 DF, UNK
     Route: 048
  11. MECOBALAMIN [Concomitant]
     Active Substance: METHYLCOBALAMIN
     Indication: HERPES ZOSTER
     Dosage: UNK MICROGRAM, UNK
     Route: 048
  12. PREGABALIN. [Concomitant]
     Active Substance: PREGABALIN
     Dosage: 75 MG, UNK
     Route: 048
  13. ACETAMINOPHEN (+) TRAMADOL HYDROCHLORIDE [Suspect]
     Active Substance: ACETAMINOPHEN\TRAMADOL HYDROCHLORIDE
     Indication: PAIN
     Dosage: 4 DF, UNK
     Route: 048
  14. PREDNISOLONE. [Concomitant]
     Active Substance: PREDNISOLONE
     Indication: PAIN
     Dosage: 25 MG, UNK
     Route: 048
  15. PREDNISOLONE. [Concomitant]
     Active Substance: PREDNISOLONE
     Dosage: 100 MG, UNK
     Route: 048
  16. LOXOPROFEN SODIUM [Concomitant]
     Active Substance: LOXOPROFEN SODIUM
     Indication: HERPES ZOSTER
     Route: 048
  17. PREGABALIN. [Concomitant]
     Active Substance: PREGABALIN
     Dosage: 100 MG, UNK
     Route: 048
  18. AMITRIPTYLINE HYDROCHLORIDE. [Suspect]
     Active Substance: AMITRIPTYLINE HYDROCHLORIDE
     Indication: PAIN
     Dosage: 10 MG, UNK
     Route: 048
  19. PREDNISOLONE. [Concomitant]
     Active Substance: PREDNISOLONE
     Dosage: 75 MG, UNK
     Route: 048
  20. PREDNISOLONE. [Concomitant]
     Active Substance: PREDNISOLONE
     Dosage: 150 MG, UNK
     Route: 048
  21. PREDNISOLONE. [Concomitant]
     Active Substance: PREDNISOLONE
     Dosage: 100 MG, UNK
     Route: 048
  22. REBAMIPIDE [Concomitant]
     Active Substance: REBAMIPIDE
     Indication: HERPES ZOSTER
     Route: 048
  23. PREDNISOLONE. [Concomitant]
     Active Substance: PREDNISOLONE
     Dosage: 50 MG, UNK
     Route: 048
  24. VALACYCLOVIR HYDROCHLORIDE. [Concomitant]
     Active Substance: VALACYCLOVIR HYDROCHLORIDE
     Indication: HERPES ZOSTER
     Route: 048
  25. PREGABALIN. [Concomitant]
     Active Substance: PREGABALIN
     Indication: HERPES ZOSTER
     Dosage: 25 MG, UNK
     Route: 048
  26. NEUROTROPIN [Concomitant]
     Active Substance: NEUROTROPIN
     Indication: PAIN
     Dosage: 4 DF, UNK
     Route: 048

REACTIONS (2)
  - Serotonin syndrome [Recovered/Resolved]
  - Somnolence [Unknown]
